FAERS Safety Report 10221023 (Version 1)
Quarter: 2014Q1

REPORT INFORMATION
  Report Type: Spontaneous
  Country: US (occurrence: None)
  Receive Date: 20140306
  Receipt Date: 20140306
  Transmission Date: 20141002
  Serious: Yes (Other)
  Sender: FDA-Public Use
  Company Number: 163-21880-13061614

PATIENT
  Age: 58 Year
  Sex: Male
  Weight: 81.6 kg

DRUGS (14)
  1. REVLIMID [Suspect]
     Indication: PLASMA CELL MYELOMA
     Dosage: 25 MG, 21 IN 21 D, PO
     Route: 048
     Dates: start: 20130515
  2. DEXAMETHASONE (DEXAMETHASONE) [Concomitant]
  3. ZOMETA (ZOLEDRONIC ACID) [Concomitant]
  4. DIAZEPAM (DIAZEPAM) [Concomitant]
  5. OXYCODONE-ACETAMINOPHEN  (OXYCOCET) [Concomitant]
  6. WARFARIN SODIUM (WARFARIN SODIUM) [Concomitant]
  7. ADVIL PM (ADVIL PM) [Concomitant]
  8. CALCIUM + VITAMIN D (LEKOVIT CA) [Concomitant]
  9. OMEPRAZOLE DR (OMEPRAZOLE) [Concomitant]
  10. COMPLETE MULTIVITAMINS (MULTIVITAMINS) [Concomitant]
  11. PANTOPRAZOLE SODIUM (PANTOPRAZOLE SODIUM) [Concomitant]
  12. TRAMADOL HCL (TRAMADOL HYDROCHLORIDE) [Concomitant]
  13. BISACODYL (BISACODYL) [Concomitant]
  14. DOC-Q-LACE (DOCUSATE SODIUM) [Concomitant]

REACTIONS (7)
  - Visual impairment [None]
  - Pruritus [None]
  - Fatigue [None]
  - Chills [None]
  - Pyrexia [None]
  - Paraesthesia [None]
  - Pruritus [None]
